FAERS Safety Report 21377953 (Version 1)
Quarter: 2022Q3

REPORT INFORMATION
  Report Type: Spontaneous
  Country: US (occurrence: US)
  Receive Date: 20220926
  Receipt Date: 20220926
  Transmission Date: 20221027
  Serious: No
  Sender: FDA-Public Use
  Company Number: US-BoehringerIngelheim-2022-BI-194134

PATIENT
  Age: 45 Year
  Sex: Male

DRUGS (1)
  1. JARDIANCE [Suspect]
     Active Substance: EMPAGLIFLOZIN
     Indication: Product used for unknown indication
     Route: 048

REACTIONS (3)
  - Paraesthesia [Unknown]
  - Feeling jittery [Unknown]
  - Dehydration [Unknown]

NARRATIVE: CASE EVENT DATE: 20220612
